FAERS Safety Report 15124993 (Version 3)
Quarter: 2018Q3

REPORT INFORMATION
  Report Type: Spontaneous
  Country: HR (occurrence: HR)
  Receive Date: 20180710
  Receipt Date: 20180924
  Transmission Date: 20181010
  Serious: Yes (Hospitalization)
  Sender: FDA-Public Use
  Company Number: HR-MYLANLABS-2018M1051194

PATIENT
  Age: 32 Year
  Sex: Male

DRUGS (34)
  1. RISPERIDONE. [Suspect]
     Active Substance: RISPERIDONE
     Indication: SOMATIC SYMPTOM DISORDER
     Dosage: 3 MG, UNK
     Route: 048
  2. CONCOR [Suspect]
     Active Substance: BISOPROLOL FUMARATE
     Indication: ESSENTIAL HYPERTENSION
     Dosage: UNK
  3. CONCOR [Suspect]
     Active Substance: BISOPROLOL FUMARATE
     Indication: PSYCHOTIC DISORDER
  4. RISPOLEPT CONSTA [Suspect]
     Active Substance: RISPERIDONE
     Dosage: 37.5 MG, QW
     Dates: start: 201110, end: 201304
  5. RISPERIDONE. [Suspect]
     Active Substance: RISPERIDONE
     Indication: ESSENTIAL HYPERTENSION
  6. DIAZEPAM. [Suspect]
     Active Substance: DIAZEPAM
     Indication: BIPOLAR DISORDER
  7. CONCOR [Suspect]
     Active Substance: BISOPROLOL FUMARATE
     Indication: SCHIZOAFFECTIVE DISORDER
  8. MIDAZOLAM [Suspect]
     Active Substance: MIDAZOLAM HYDROCHLORIDE
     Indication: SOMATIC SYMPTOM DISORDER
     Dosage: UNK
     Route: 065
  9. LAMOTRIGINE. [Suspect]
     Active Substance: LAMOTRIGINE
     Indication: HYPOMANIA
  10. RISPOLEPT CONSTA [Suspect]
     Active Substance: RISPERIDONE
     Dosage: 50 MG, QW
     Dates: start: 201304, end: 201505
  11. RAMIPRIL. [Suspect]
     Active Substance: RAMIPRIL
     Indication: SCHIZOAFFECTIVE DISORDER
     Dosage: UNK
     Route: 048
  12. LAMOTRIGINE. [Suspect]
     Active Substance: LAMOTRIGINE
     Indication: BIPOLAR DISORDER
  13. LAMOTRIGINE. [Suspect]
     Active Substance: LAMOTRIGINE
     Indication: SCHIZOAFFECTIVE DISORDER
  14. CLOZAPINE. [Suspect]
     Active Substance: CLOZAPINE
     Indication: SCHIZOAFFECTIVE DISORDER
     Dosage: 5 MG, UNK
  15. BYOL [Suspect]
     Active Substance: BISOPROLOL
     Indication: SCHIZOAFFECTIVE DISORDER
     Dosage: UNK
  16. DIAZEPAM. [Suspect]
     Active Substance: DIAZEPAM
     Indication: ESSENTIAL HYPERTENSION
  17. DIAZEPAM. [Suspect]
     Active Substance: DIAZEPAM
     Indication: DEPRESSION
  18. MIDAZOLAM [Suspect]
     Active Substance: MIDAZOLAM HYDROCHLORIDE
     Indication: SCHIZOAFFECTIVE DISORDER
  19. LAMOTRIGINE. [Suspect]
     Active Substance: LAMOTRIGINE
     Indication: ESSENTIAL HYPERTENSION
  20. RISPOLEPT CONSTA [Suspect]
     Active Substance: RISPERIDONE
     Dosage: 37.5 MG, QW
     Dates: start: 201304
  21. DIAZEPAM. [Suspect]
     Active Substance: DIAZEPAM
     Indication: SOMATIC SYMPTOM DISORDER
     Dosage: UNK
  22. DIAZEPAM. [Suspect]
     Active Substance: DIAZEPAM
     Indication: SCHIZOAFFECTIVE DISORDER
  23. DIAZEPAM. [Suspect]
     Active Substance: DIAZEPAM
     Indication: HYPOMANIA
  24. LAMOTRIGINE. [Suspect]
     Active Substance: LAMOTRIGINE
     Indication: SOMATIC SYMPTOM DISORDER
     Dosage: UNK
     Route: 065
  25. LAMOTRIGINE. [Suspect]
     Active Substance: LAMOTRIGINE
     Indication: DEPRESSION
  26. RISPOLEPT CONSTA [Suspect]
     Active Substance: RISPERIDONE
     Dosage: 50 MG, QW
     Dates: start: 201505
  27. CONCOR [Suspect]
     Active Substance: BISOPROLOL FUMARATE
     Indication: SOMATIC SYMPTOM DISORDER
  28. MIDAZOLAM [Suspect]
     Active Substance: MIDAZOLAM HYDROCHLORIDE
     Indication: PSYCHOTIC DISORDER
  29. MIDAZOLAM [Suspect]
     Active Substance: MIDAZOLAM HYDROCHLORIDE
     Indication: ESSENTIAL HYPERTENSION
  30. RISPERIDONE. [Suspect]
     Active Substance: RISPERIDONE
     Indication: PSYCHOTIC DISORDER
     Dosage: UNK
     Route: 048
  31. RISPERIDONE. [Suspect]
     Active Substance: RISPERIDONE
     Indication: SCHIZOAFFECTIVE DISORDER
  32. LAMOTRIGINE. [Suspect]
     Active Substance: LAMOTRIGINE
     Indication: PSYCHOTIC DISORDER
  33. LAMOTRIGINE. [Suspect]
     Active Substance: LAMOTRIGINE
     Indication: ADJUSTMENT DISORDER
  34. RISPOLEPT CONSTA [Suspect]
     Active Substance: RISPERIDONE
     Indication: SCHIZOAFFECTIVE DISORDER
     Dosage: 50 MG, UNK

REACTIONS (2)
  - Depression [Recovered/Resolved]
  - Illusion [Unknown]

NARRATIVE: CASE EVENT DATE: 201304
